FAERS Safety Report 10972993 (Version 2)
Quarter: 2015Q2

REPORT INFORMATION
  Report Type: Spontaneous
  Country: US (occurrence: US)
  Receive Date: 20150331
  Receipt Date: 20150525
  Transmission Date: 20150821
  Serious: No
  Sender: FDA-Public Use
  Company Number: US-JNJFOC-20130809338

PATIENT
  Age: 43 Year
  Sex: Male

DRUGS (5)
  1. MODAFINIL. [Concomitant]
     Active Substance: MODAFINIL
     Route: 065
     Dates: start: 20130807
  2. HALOPERIDOL DECANOATE. [Concomitant]
     Active Substance: HALOPERIDOL DECANOATE
     Route: 065
     Dates: start: 20130805
  3. BENZTROPINE [Concomitant]
     Active Substance: BENZTROPINE
     Route: 065
     Dates: start: 20130801
  4. BUPROPION [Concomitant]
     Active Substance: BUPROPION
     Route: 065
     Dates: start: 20130725
  5. RISPERDAL CONSTA [Suspect]
     Active Substance: RISPERIDONE
     Indication: PRODUCT USED FOR UNKNOWN INDICATION
     Route: 030
     Dates: start: 20130805

REACTIONS (3)
  - Device leakage [Unknown]
  - Wrong technique in drug usage process [Unknown]
  - Drug dose omission [Recovered/Resolved]

NARRATIVE: CASE EVENT DATE: 20130805
